FAERS Safety Report 7889795-2 (Version None)
Quarter: 2011Q4

REPORT INFORMATION
  Report Type: 
  Country: None (occurrence: None)
  Receive Date: 20111103
  Receipt Date: 20111024
  Transmission Date: 20120403
  Serious: Yes (Hospitalization)
  Sender: FDA-Public Use
  Company Number: US-GLAXOSMITHKLINE-A0882808A

PATIENT
  Age: 50 Year
  Sex: Male
  Weight: 100 kg

DRUGS (1)
  1. AVANDIA [Suspect]
     Indication: TYPE 2 DIABETES MELLITUS
     Dosage: 8MG PER DAY
     Route: 048
     Dates: end: 20070901

REACTIONS (18)
  - CARDIAC ARREST [None]
  - PAIN [None]
  - ASTHENIA [None]
  - MENTAL STATUS CHANGES [None]
  - DEHYDRATION [None]
  - RESPIRATORY DISTRESS [None]
  - SEPTIC SHOCK [None]
  - CHEST PAIN [None]
  - MULTIPLE INJURIES [None]
  - PNEUMONIA [None]
  - ENCEPHALOPATHY [None]
  - RHABDOMYOLYSIS [None]
  - HEART INJURY [None]
  - FLUID OVERLOAD [None]
  - RENAL FAILURE ACUTE [None]
  - IRON DEFICIENCY ANAEMIA [None]
  - FLUID RETENTION [None]
  - MYOCARDIAL INFARCTION [None]
